FAERS Safety Report 9386877 (Version 4)
Quarter: 2013Q3

REPORT INFORMATION
  Report Type: Spontaneous
  Country: GB (occurrence: None)
  Receive Date: 20130702
  Receipt Date: 20130726
  Transmission Date: 20140515
  Serious: Yes (Congenital Anomaly, Other)
  Sender: FDA-Public Use
  Company Number: AUR-APL-2013-05230

PATIENT
  Sex: Male

DRUGS (1)
  1. CITALOPRAM [Suspect]
     Indication: ANXIETY
     Route: 064

REACTIONS (4)
  - Maternal drugs affecting foetus [None]
  - Heart disease congenital [None]
  - Off label use [None]
  - Post procedural swelling [None]
